FAERS Safety Report 7940810 (Version 3)
Quarter: 2017Q4

REPORT INFORMATION
  Report Type: Spontaneous
  Country: JP (occurrence: JP)
  Receive Date: 20110511
  Receipt Date: 20171207
  Transmission Date: 20180321
  Serious: Yes (Hospitalization)
  Sender: FDA-Public Use
  Company Number: PHHY2010JP90171

PATIENT
  Age: 68 Year
  Sex: Female

DRUGS (1)
  1. IMATINIB [Suspect]
     Active Substance: IMATINIB
     Indication: CHRONIC MYELOID LEUKAEMIA
     Dosage: 400 MG/DAY
     Route: 065

REACTIONS (3)
  - Interstitial lung disease [Recovered/Resolved]
  - Cough [Recovered/Resolved]
  - Eosinophilic pneumonia [Recovered/Resolved]
